FAERS Safety Report 18333999 (Version 1)
Quarter: 2020Q4

REPORT INFORMATION
  Report Type: Spontaneous
  Country: US (occurrence: US)
  Receive Date: 20201001
  Receipt Date: 20201001
  Transmission Date: 20210113
  Serious: No
  Sender: FDA-Public Use
  Company Number: US-SA-2020SA270212

PATIENT

DRUGS (4)
  1. PRALUENT [Suspect]
     Active Substance: ALIROCUMAB
     Indication: DRUG INTOLERANCE
  2. PRALUENT [Suspect]
     Active Substance: ALIROCUMAB
     Indication: ANGIOPATHY
     Dosage: 150 MG, QOW
     Route: 058
     Dates: start: 202008
  3. PRALUENT [Suspect]
     Active Substance: ALIROCUMAB
     Indication: CEREBROVASCULAR ACCIDENT
  4. PRALUENT [Suspect]
     Active Substance: ALIROCUMAB
     Indication: HYPERCHOLESTEROLAEMIA

REACTIONS (2)
  - Injection site erythema [Unknown]
  - Injection site indentation [Unknown]

NARRATIVE: CASE EVENT DATE: 20200919
